APPROVED DRUG PRODUCT: OXYBUTYNIN CHLORIDE
Active Ingredient: OXYBUTYNIN CHLORIDE
Strength: 5MG
Dosage Form/Route: TABLET;ORAL
Application: A071655 | Product #001 | TE Code: AB
Applicant: TEVA PHARMACEUTICALS USA INC
Approved: Nov 14, 1988 | RLD: No | RS: No | Type: RX